FAERS Safety Report 12449366 (Version 3)
Quarter: 2016Q3

REPORT INFORMATION
  Report Type: Spontaneous
  Country: US (occurrence: US)
  Receive Date: 20160608
  Receipt Date: 20160818
  Transmission Date: 20161109
  Serious: Yes (Other)
  Sender: FDA-Public Use
  Company Number: US-009507513-1606USA003723

PATIENT
  Age: 26 Year
  Sex: Female
  Weight: 78.91 kg

DRUGS (2)
  1. NEXPLANON [Suspect]
     Active Substance: ETONOGESTREL
     Dosage: 1 DF, IN THE SULCUS BICIPITALIS MEDIALIS
     Route: 059
  2. NEXPLANON [Suspect]
     Active Substance: ETONOGESTREL
     Indication: CONTRACEPTION
     Dosage: 1 DF, IN THE SULCUS BICIPITALIS MEDIALIS
     Route: 059
     Dates: start: 20160516, end: 20160520

REACTIONS (4)
  - Cellulitis [Recovered/Resolved]
  - Device deployment issue [Unknown]
  - Device deployment issue [Recovered/Resolved]
  - Device expulsion [Recovered/Resolved]

NARRATIVE: CASE EVENT DATE: 201605
